FAERS Safety Report 17099626 (Version 8)
Quarter: 2023Q2

REPORT INFORMATION
  Report Type: Report from Study
  Country: CN (occurrence: CN)
  Receive Date: 20191202
  Receipt Date: 20230427
  Transmission Date: 20230722
  Serious: Yes (Hospitalization)
  Sender: FDA-Public Use
  Company Number: NVSC2019CN041826

PATIENT
  Age: 50 Year
  Sex: Female
  Weight: 53 kg

DRUGS (11)
  1. PLACEBO [Suspect]
     Active Substance: UNSPECIFIED INGREDIENT
     Indication: HER2 negative breast cancer
     Dosage: UNK
     Route: 048
     Dates: start: 20190911
  2. LETROZOLE [Suspect]
     Active Substance: LETROZOLE
     Indication: HER2 negative breast cancer
     Dosage: 2.5 MG, QD
     Route: 048
     Dates: start: 20190911
  3. CELECOXIB [Concomitant]
     Active Substance: CELECOXIB
     Indication: Pain
     Dosage: UNK
     Route: 065
     Dates: start: 20191009
  4. ZOLEDRONIC ACID [Concomitant]
     Active Substance: ZOLEDRONIC ACID
     Indication: Prophylaxis
     Dosage: UNK
     Route: 065
     Dates: start: 20191106, end: 20191106
  5. DIGOXIN [Concomitant]
     Active Substance: DIGOXIN
     Indication: Cardiac failure
     Dosage: UNK
     Route: 065
     Dates: start: 20191114, end: 20191202
  6. SPIRONOLACTONE [Concomitant]
     Active Substance: SPIRONOLACTONE
     Indication: Product used for unknown indication
     Dosage: 40 MG, TID
     Route: 048
  7. HEPARIN [Concomitant]
     Active Substance: HEPARIN SODIUM
     Indication: Anticoagulant therapy
     Dosage: UNK
     Route: 065
     Dates: start: 20191115, end: 20191202
  8. CISPLATIN [Concomitant]
     Active Substance: CISPLATIN
     Indication: Product used for unknown indication
     Dosage: UNK
     Route: 065
     Dates: start: 20191119, end: 20191119
  9. CISPLATIN [Concomitant]
     Active Substance: CISPLATIN
     Dosage: UNK
     Route: 065
     Dates: start: 20191123, end: 20191123
  10. AMBROXOL [Concomitant]
     Active Substance: AMBROXOL
     Indication: Product used for unknown indication
     Dosage: UNK
     Route: 065
     Dates: start: 20191114, end: 20191116
  11. INSULIN GLARGINE [Concomitant]
     Active Substance: INSULIN GLARGINE
     Indication: Diabetes mellitus
     Dosage: UNK
     Route: 065
     Dates: start: 20191105, end: 20191202

REACTIONS (1)
  - Pleural effusion [Recovered/Resolved with Sequelae]

NARRATIVE: CASE EVENT DATE: 20191112
